FAERS Safety Report 22868567 (Version 6)
Quarter: 2023Q4

REPORT INFORMATION
  Report Type: Report from Study
  Country: CZ (occurrence: CZ)
  Receive Date: 20230825
  Receipt Date: 20231108
  Transmission Date: 20240109
  Serious: Yes (Death, Life-Threatening, Hospitalization, Other)
  Sender: FDA-Public Use
  Company Number: CZ-BAXTER-2023BAX028423

PATIENT
  Age: 76 Year
  Sex: Male
  Weight: 85 kg

DRUGS (39)
  1. DOXORUBICIN HYDROCHLORIDE [Suspect]
     Active Substance: DOXORUBICIN HYDROCHLORIDE
     Indication: Diffuse large B-cell lymphoma
     Dosage: 101.05 MG, ONCE, EVERY 3 WEEKS
     Route: 042
     Dates: start: 20230613, end: 20230711
  2. TRUXIMA [Suspect]
     Active Substance: RITUXIMAB-ABBS
     Indication: Diffuse large B-cell lymphoma
     Dosage: 757.85 MG ONCE, EVERY 3 WEEKS
     Route: 042
     Dates: start: 20230613, end: 20230711
  3. VINCRISTINE [Suspect]
     Active Substance: VINCRISTINE
     Indication: Diffuse large B-cell lymphoma
     Dosage: 2 MG, ONCE, EVERY 3 WEEKS
     Route: 042
     Dates: start: 20230613, end: 20230711
  4. PREDNISONE [Suspect]
     Active Substance: PREDNISONE
     Indication: Diffuse large B-cell lymphoma
     Dosage: 100 MG C1-6, DAY 1-5, EVERY 1 DAYS
     Route: 048
     Dates: start: 20230613, end: 20230711
  5. CYCLOPHOSPHAMIDE [Suspect]
     Active Substance: CYCLOPHOSPHAMIDE
     Indication: Diffuse large B-cell lymphoma
     Dosage: 1515.7 MG ONCE, EVERY 3 WEEK
     Route: 042
     Dates: start: 20230613, end: 20230711
  6. EPCORITAMAB [Suspect]
     Active Substance: EPCORITAMAB
     Indication: Diffuse large B-cell lymphoma
     Dosage: 0.16 MG PRIMING DOSE, C1D1, TOTAL
     Route: 042
     Dates: start: 20230613, end: 20230613
  7. EPCORITAMAB [Suspect]
     Active Substance: EPCORITAMAB
     Dosage: 48 MG C1 (STEP-UP), CYCLES 2 - 4 (21-DAY CYCLE, WEEKLY DOSE), C5 - 8 (21-DAY CYCLE, EVERY 3, WEEKS)
     Route: 058
     Dates: start: 20230613, end: 20230618
  8. EPCORITAMAB [Suspect]
     Active Substance: EPCORITAMAB
     Dosage: 0.8 MG C1D8, INTERMEDIATE DOSE, TOTAL
     Route: 058
     Dates: start: 20230620, end: 20230620
  9. EPCORITAMAB [Suspect]
     Active Substance: EPCORITAMAB
     Dosage: 48 MG FULL DOSE C1, D15, TOTAL
     Route: 058
     Dates: start: 20230627, end: 20230627
  10. EPCORITAMAB [Suspect]
     Active Substance: EPCORITAMAB
     Dosage: 48 MG, EVERY 1 WEEKS
     Dates: start: 20230711, end: 20230718
  11. EPCORITAMAB [Suspect]
     Active Substance: EPCORITAMAB
     Dosage: 48 MG C2, D15, EVERY 1 WEEKS
     Dates: start: 20230808, end: 20230808
  12. DEXAMETHASONE [Concomitant]
     Active Substance: DEXAMETHASONE
     Indication: Cytokine release syndrome
     Dosage: PREMEDICATION FOR STUDY DRUGS
     Dates: start: 20230620
  13. DEXAMETHASONE [Concomitant]
     Active Substance: DEXAMETHASONE
     Indication: Prophylaxis
     Dosage: PREMEDICATION FOR STUDY DRUGS
     Dates: start: 20230621
  14. DEXAMETHASONE [Concomitant]
     Active Substance: DEXAMETHASONE
     Dosage: 4 MG, (4/DAYS)
     Dates: start: 20230627
  15. DEXAMETHASONE [Concomitant]
     Active Substance: DEXAMETHASONE
     Dosage: 40 MG, ONCE, CYCLICAL
     Dates: start: 20230704
  16. DEXAMETHASONE [Concomitant]
     Active Substance: DEXAMETHASONE
     Dosage: 40 MG, ONCE, TOTAL
     Dates: start: 20230718
  17. CONTROLOC [Concomitant]
     Active Substance: PANTOPRAZOLE SODIUM
     Indication: Prophylaxis against gastrointestinal ulcer
     Dosage: 40 MG, EVERY 1 DAYS
     Dates: start: 20230610
  18. CONTROLOC [Concomitant]
     Active Substance: PANTOPRAZOLE SODIUM
     Dosage: 80 ML, AS NECESSARY
     Dates: start: 20230719
  19. FILGRASTIM [Concomitant]
     Active Substance: FILGRASTIM
     Indication: Prophylaxis
     Dosage: 48 IU, DAILY
     Dates: start: 20230620, end: 20230622
  20. FILGRASTIM [Concomitant]
     Active Substance: FILGRASTIM
     Indication: Neutropenia
     Dosage: 48 IU, EVERY 1 DAYS
     Dates: start: 20230713
  21. FILGRASTIM [Concomitant]
     Active Substance: FILGRASTIM
     Dosage: 48 IU, EVERY 1 DAYS
     Dates: start: 20230718, end: 20230723
  22. MEROPENEM [Concomitant]
     Active Substance: MEROPENEM
     Indication: Infection prophylaxis
     Dosage: 2 G;  INTERMITTENT
     Dates: start: 20230705, end: 20230711
  23. MEROPENEM [Concomitant]
     Active Substance: MEROPENEM
     Indication: Urosepsis
     Dosage: 2 G,  INTERMITTENT
     Dates: start: 20230705, end: 20230707
  24. SULFAMETHOXAZOLE\TRIMETHOPRIM [Concomitant]
     Active Substance: SULFAMETHOXAZOLE\TRIMETHOPRIM
     Indication: Infection prophylaxis
     Dosage: 1 TABLET SULFAMETHOXAZOLE 800 MG/TRIMETHOPRIM 160 MG, 2/DAYS
     Dates: start: 20230610, end: 20230719
  25. ZALDIAR [Concomitant]
     Active Substance: ACETAMINOPHEN\TRAMADOL HYDROCHLORIDE
     Indication: Spinal pain
     Dosage: 1 DF, ONCE
     Dates: start: 20230626, end: 20230626
  26. ZALDIAR [Concomitant]
     Active Substance: ACETAMINOPHEN\TRAMADOL HYDROCHLORIDE
     Indication: Chronic disease
  27. BISOPROLOL FUMARATE [Concomitant]
     Active Substance: BISOPROLOL FUMARATE
     Indication: Hypertension
     Dosage: 2.5 MG, EVERY 1 DAYS
     Dates: start: 20230614
  28. TAMSULOSIN HYDROCHLORIDE [Concomitant]
     Active Substance: TAMSULOSIN HYDROCHLORIDE
     Indication: Benign prostatic hyperplasia
     Dosage: 0.4 MG, EVERY 1 DAY
     Dates: start: 2020
  29. VALACYCLOVIR HYDROCHLORIDE [Concomitant]
     Active Substance: VALACYCLOVIR HYDROCHLORIDE
     Indication: Antiviral prophylaxis
     Dosage: 500 MG, EVERY 1 DAYS
     Dates: start: 20230609
  30. TAMSULOSIN HYDROCHLORIDE [Concomitant]
     Active Substance: TAMSULOSIN HYDROCHLORIDE
     Indication: Benign prostatic hyperplasia
     Dosage: 0.4 MG, EVERY 1 DAYS
     Dates: start: 2020
  31. ALLOPURINOL [Concomitant]
     Active Substance: ALLOPURINOL
     Indication: Prophylaxis
     Dosage: 300 MG, EVERY 1 DAYS
     Dates: start: 20230609
  32. PERINDOPRIL [Concomitant]
     Active Substance: PERINDOPRIL
     Indication: Hypertension
     Dosage: 2 MG, EVERY 1 DAYS
     Dates: start: 20030610
  33. ACYCLOVIR [Concomitant]
     Active Substance: ACYCLOVIR
     Indication: Antiviral prophylaxis
     Dosage: 500 MG, EVERY 1 DAYS
     Dates: start: 20230720
  34. OMEPRAZOLE [Concomitant]
     Active Substance: OMEPRAZOLE
     Indication: Dyspepsia
     Dosage: 20 MG, 2/DAYS,
     Dates: start: 202302, end: 20230719
  35. NADROPARIN CALCIUM [Concomitant]
     Active Substance: NADROPARIN CALCIUM
     Indication: Thrombosis prophylaxis
     Dosage: 0.4 ML, EVERY 1 DAYS
     Dates: start: 20230720, end: 20230810
  36. ANIDULAFUNGIN [Concomitant]
     Active Substance: ANIDULAFUNGIN
     Indication: Antifungal prophylaxis
     Dosage: 100 MG, EVERY 1 DAYS
     Dates: start: 20230722, end: 20230810
  37. TOCILIZUMAB [Concomitant]
     Active Substance: TOCILIZUMAB
     Indication: Prophylaxis
     Dosage: 800 MG, AS NECESSARY
     Dates: start: 20230704
  38. TOCILIZUMAB [Concomitant]
     Active Substance: TOCILIZUMAB
     Indication: Cytokine release syndrome
  39. TRAMADOL [Concomitant]
     Active Substance: TRAMADOL\TRAMADOL HYDROCHLORIDE
     Indication: Spinal pain
     Dosage: 100 MG, AS NECESSARY
     Dates: start: 20230719

REACTIONS (5)
  - Septic shock [Fatal]
  - Sepsis [Recovered/Resolved]
  - Pneumothorax [Not Recovered/Not Resolved]
  - Hypotension [Not Recovered/Not Resolved]
  - Dyspnoea [Not Recovered/Not Resolved]

NARRATIVE: CASE EVENT DATE: 20230718
